FAERS Safety Report 7406597-1 (Version None)
Quarter: 2011Q2

REPORT INFORMATION
  Report Type: 
  Country: None (occurrence: None)
  Receive Date: 20110406
  Receipt Date: 20110406
  Transmission Date: 20111010
  Serious: Yes (Death)
  Sender: FDA-Public Use
  Company Number: None

PATIENT
  Age: 64 Year
  Sex: Male
  Weight: 81.6475 kg

DRUGS (6)
  1. METOPROLOL [Concomitant]
  2. HYDROCHLOROTHIAZIDE [Concomitant]
  3. BYSTOLIC [Suspect]
     Indication: HYPERTENSION
     Dosage: 10 MG DAILY ORAL
     Route: 048
     Dates: start: 20100917, end: 20100920
  4. LISINOPRIL [Concomitant]
  5. ASPIRIN [Concomitant]
  6. DICLOFENAC SODIUM [Concomitant]

REACTIONS (4)
  - NAUSEA [None]
  - SUDDEN DEATH [None]
  - DRUG INTERACTION [None]
  - DIZZINESS [None]
